FAERS Safety Report 18238342 (Version 18)
Quarter: 2023Q4

REPORT INFORMATION
  Report Type: Spontaneous
  Country: US (occurrence: US)
  Receive Date: 20200907
  Receipt Date: 20231218
  Transmission Date: 20240109
  Serious: Yes (Hospitalization, Other)
  Sender: FDA-Public Use
  Company Number: US-PFIZER INC-2020343038

PATIENT
  Age: 66 Year
  Sex: Female
  Weight: 57.596 kg

DRUGS (7)
  1. EUCRISA [Suspect]
     Active Substance: CRISABOROLE
     Indication: Eczema asteatotic
     Dosage: UNK, 2X/DAY (DAILY AT NIGHT AND EVERY MORNING)
  2. EUCRISA [Suspect]
     Active Substance: CRISABOROLE
     Dosage: UNK, DAILY (APPLY DAILY TO AFFECTED AREA(S))
  3. EUCRISA [Suspect]
     Active Substance: CRISABOROLE
     Dosage: AS NEEDED (APPLY TO AFFECTED AREAS ON THE BODY 2X DAILY PRN)
  4. EUCRISA [Suspect]
     Active Substance: CRISABOROLE
     Dosage: AFFECTED AREA ON BODY TWICE DAILY AS NEEDED
     Route: 061
  5. EUCRISA [Suspect]
     Active Substance: CRISABOROLE
     Dosage: APPLY TO LOWER LEGS TWICE DAILY UNTIL HEALED
     Route: 061
  6. EUCRISA [Suspect]
     Active Substance: CRISABOROLE
     Dosage: UNK
  7. CLINDAMYCIN HYDROCHLORIDE [Concomitant]
     Active Substance: CLINDAMYCIN HYDROCHLORIDE
     Indication: Sinusitis
     Dosage: UNK

REACTIONS (13)
  - Femur fracture [Not Recovered/Not Resolved]
  - Lower limb fracture [Not Recovered/Not Resolved]
  - Pruritus [Recovered/Resolved]
  - Dysstasia [Recovered/Resolved]
  - Limb injury [Recovered/Resolved]
  - Rash [Recovered/Resolved]
  - Fall [Recovered/Resolved]
  - Pain [Recovered/Resolved]
  - Rash maculo-papular [Recovered/Resolved]
  - Foot operation [Not Recovered/Not Resolved]
  - Skin irritation [Unknown]
  - Drug ineffective for unapproved indication [Not Recovered/Not Resolved]
  - Off label use [Not Recovered/Not Resolved]

NARRATIVE: CASE EVENT DATE: 20201012
